FAERS Safety Report 7235101-6 (Version None)
Quarter: 2011Q1

REPORT INFORMATION
  Report Type: 
  Country: None (occurrence: None)
  Receive Date: 20110120
  Receipt Date: 20110112
  Transmission Date: 20110831
  Serious: Yes (Other)
  Sender: FDA-Public Use
  Company Number: US-US-EMD SERONO, INC.-7034509

PATIENT
  Sex: Female
  Weight: 77 kg

DRUGS (25)
  1. VAGIFEM [Concomitant]
     Route: 067
  2. VITAMIN E [Concomitant]
     Route: 048
  3. VITAMIN B-12 [Concomitant]
     Route: 048
  4. MIRALAX [Concomitant]
     Route: 048
  5. SINGULAIR [Concomitant]
     Route: 048
  6. VITAMINS B1 B6 B12 INJECTION [Concomitant]
  7. ALLEGRA [Concomitant]
     Route: 048
  8. CLIMARA [Concomitant]
     Route: 062
  9. REBIF [Suspect]
     Indication: MULTIPLE SCLEROSIS
     Route: 058
     Dates: start: 20060210
  10. BACLOFEN [Concomitant]
     Route: 048
  11. KLOR-CON [Concomitant]
     Route: 048
  12. FERROUS GLUCONATE [Concomitant]
     Route: 048
  13. ASCORBIC ACID [Concomitant]
     Route: 048
  14. OLIVE LEAF [Concomitant]
     Route: 048
  15. VITAMIN B6 [Concomitant]
     Route: 048
  16. GABAPENTIN [Concomitant]
     Route: 048
  17. GABAPENTIN [Concomitant]
     Route: 048
  18. CHOLECALCIFEROL [Concomitant]
     Route: 048
  19. CYMBALTA [Concomitant]
     Route: 048
  20. CALTRATE 600+D [Concomitant]
     Route: 048
  21. REMERON [Concomitant]
     Route: 048
  22. ASTEPRO 0.15% NASAL SOLUTION [Concomitant]
     Route: 045
  23. ALLERGY INJECTIONS [Concomitant]
     Indication: HYPERSENSITIVITY
     Dates: start: 19970101
  24. AMITIZA [Concomitant]
     Route: 048
  25. BENEFIBER DRINK MIX [Concomitant]
     Route: 048

REACTIONS (4)
  - INJECTION SITE INDURATION [None]
  - HEPATOBILIARY SCAN ABNORMAL [None]
  - PRECANCEROUS CELLS PRESENT [None]
  - INJECTION SITE PAIN [None]
